FAERS Safety Report 15739806 (Version 1)
Quarter: 2018Q4

REPORT INFORMATION
  Report Type: Spontaneous
  Country: US (occurrence: US)
  Receive Date: 20181219
  Receipt Date: 20181219
  Transmission Date: 20190205
  Serious: Yes (Other)
  Sender: FDA-Public Use
  Company Number: US-IROKO PHARMACEUTICALS LLC-US-I09001-18-00119

PATIENT
  Age: 74 Year
  Sex: Female

DRUGS (1)
  1. MELOXICAM AMBIGUOUS [Suspect]
     Active Substance: MELOXICAM
     Indication: PRODUCT USED FOR UNKNOWN INDICATION
     Route: 065

REACTIONS (2)
  - Gastrointestinal haemorrhage [Unknown]
  - Arthritis [Unknown]
